FAERS Safety Report 7806955-7 (Version None)
Quarter: 2011Q4

REPORT INFORMATION
  Report Type: 
  Country: None (occurrence: None)
  Receive Date: 20111011
  Receipt Date: 20110926
  Transmission Date: 20120403
  Serious: Yes (Hospitalization)
  Sender: FDA-Public Use
  Company Number: US-MUTUAL PHARMACEUTICAL COMPANY, INC.-SFTM20110008

PATIENT
  Age: 78 Year
  Sex: Female

DRUGS (12)
  1. MEMANTINE [Suspect]
     Indication: DEMENTIA ALZHEIMER'S TYPE
     Route: 065
     Dates: start: 20060701
  2. MEMANTINE [Suspect]
     Route: 065
     Dates: end: 20071001
  3. DONEPEZIL HCL [Concomitant]
     Route: 065
     Dates: start: 20030901, end: 20071001
  4. LISINOPRIL AND HYDROCHLOROTHIAZIDE [Concomitant]
     Indication: PRODUCT USED FOR UNKNOWN INDICATION
     Route: 065
     Dates: start: 20030101, end: 20071001
  5. ATORVASTATIN [Concomitant]
     Indication: PRODUCT USED FOR UNKNOWN INDICATION
     Route: 065
     Dates: start: 20030101, end: 20071001
  6. SULFAMETHOXAZOLE AND TRIMETHOPRIM [Suspect]
     Indication: URINARY TRACT INFECTION
     Route: 065
     Dates: start: 20070702, end: 20070706
  7. PAROXETINE HCL [Concomitant]
     Route: 065
     Dates: start: 20071001
  8. LEVODOPA/CARBODOPA 250 MG/100 MG [Concomitant]
     Indication: RESTLESS LEGS SYNDROME
     Route: 065
     Dates: start: 20070901, end: 20071001
  9. TRIMETHOPRIM [Suspect]
     Indication: PROPHYLAXIS URINARY TRACT INFECTION
     Route: 065
     Dates: start: 20070701, end: 20071001
  10. FAMOTIDINE [Concomitant]
     Indication: GASTROOESOPHAGEAL REFLUX DISEASE
     Route: 065
     Dates: start: 20070101, end: 20071001
  11. DONEPEZIL HCL [Concomitant]
     Indication: DEMENTIA ALZHEIMER'S TYPE
     Route: 065
     Dates: start: 20030201, end: 20030901
  12. PAROXETINE HCL [Concomitant]
     Indication: PRODUCT USED FOR UNKNOWN INDICATION
     Route: 065
     Dates: start: 20020101, end: 20071001

REACTIONS (3)
  - MYOCLONUS [None]
  - DRUG INTERACTION [None]
  - DELIRIUM [None]
